FAERS Safety Report 23187204 (Version 1)
Quarter: 2023Q4

REPORT INFORMATION
  Report Type: Report from Study
  Country: US (occurrence: US)
  Receive Date: 20231115
  Receipt Date: 20231115
  Transmission Date: 20240110
  Serious: Yes (Other)
  Sender: FDA-Public Use
  Company Number: US-AUROBINDO-AUR-APL-2014-05850

PATIENT
  Age: 46 Year
  Sex: Female

DRUGS (12)
  1. DULOXETINE HYDROCHLORIDE [Suspect]
     Active Substance: DULOXETINE HYDROCHLORIDE
     Indication: Major depression
     Dosage: 60 MG,DAILY,
     Route: 065
  2. GABAPENTIN [Suspect]
     Active Substance: GABAPENTIN
     Indication: Major depression
     Dosage: 600 MG AT BEDTIME
     Route: 065
  3. PAROXETINE [Suspect]
     Active Substance: PAROXETINE
     Indication: Major depression
     Dosage: 262 MILLIGRAM
     Route: 065
  4. VENLAFAXINE HYDROCHLORIDE [Suspect]
     Active Substance: VENLAFAXINE HYDROCHLORIDE
     Indication: Major depression
     Dosage: 262.5 MG,UNK,
     Route: 065
  5. PRAZOSIN [Suspect]
     Active Substance: PRAZOSIN
     Indication: Major depression
     Dosage: 3 MG,UNK,
     Route: 065
  6. TRAZODONE [Suspect]
     Active Substance: TRAZODONE HYDROCHLORIDE
     Indication: Major depression
     Dosage: UNK MILLIGRAM
     Route: 065
  7. ARIPIPRAZOLE [Suspect]
     Active Substance: ARIPIPRAZOLE
     Indication: Major depression
     Dosage: 15 MG,UNK,
     Route: 065
  8. CHLORPROMAZINE HYDROCHLORIDE [Suspect]
     Active Substance: CHLORPROMAZINE HYDROCHLORIDE
     Indication: Major depression
     Dosage: 100 MG,ONCE A DAY AT BED TIME
     Route: 065
  9. LITHIUM CARBONATE [Suspect]
     Active Substance: LITHIUM CARBONATE
     Indication: Major depression
     Dosage: 900 MG,UNK,
     Route: 065
  10. PROPRANOLOL HYDROCHLORIDE [Suspect]
     Active Substance: PROPRANOLOL HYDROCHLORIDE
     Indication: Major depression
     Dosage: 10 MG,3 TIMES A DAY,
     Route: 065
  11. DEXTROAMPHETAMINE [Suspect]
     Active Substance: DEXTROAMPHETAMINE
     Indication: Major depression
     Dosage: 5 MG,UNK,
     Route: 065
  12. RISPERIDONE [Suspect]
     Active Substance: RISPERIDONE
     Indication: Major depression
     Dosage: 2 MG,UNK,
     Route: 065

REACTIONS (1)
  - Drug ineffective [Unknown]
